FAERS Safety Report 10231744 (Version 1)
Quarter: 2014Q2

REPORT INFORMATION
  Report Type: Spontaneous
  Country: NL (occurrence: NL)
  Receive Date: 20140612
  Receipt Date: 20140612
  Transmission Date: 20141212
  Serious: Yes (Hospitalization)
  Sender: FDA-Public Use
  Company Number: NL-AMGEN-NLDSP2011071203

PATIENT
  Age: 90 Year
  Sex: Male

DRUGS (1)
  1. ARANESP [Suspect]
     Indication: MYELODYSPLASTIC SYNDROME
     Dosage: 30 MUG, QWK
     Route: 058
     Dates: start: 20101116, end: 20110308

REACTIONS (1)
  - Haemoglobin increased [Unknown]
